FAERS Safety Report 7524868-5 (Version None)
Quarter: 2011Q2

REPORT INFORMATION
  Report Type: 
  Country: None (occurrence: None)
  Receive Date: 20110606
  Receipt Date: 20110524
  Transmission Date: 20111010
  Serious: Yes (Other)
  Sender: FDA-Public Use
  Company Number: DE-ELI_LILLY_AND_COMPANY-DE201105006664

PATIENT
  Age: 70 Year
  Sex: Female

DRUGS (3)
  1. FORTEO [Suspect]
     Indication: OSTEOPOROSIS
     Dosage: UNK, QD
     Route: 058
     Dates: start: 20091119
  2. VITAMIN D [Concomitant]
  3. CALCIUM CARBONATE [Concomitant]

REACTIONS (4)
  - SPINAL FRACTURE [None]
  - ABDOMINAL DISCOMFORT [None]
  - DYSPNOEA [None]
  - POSTURE ABNORMAL [None]
